FAERS Safety Report 7472268-9 (Version None)
Quarter: 2011Q2

REPORT INFORMATION
  Report Type: 
  Country: None (occurrence: None)
  Receive Date: 20110502
  Receipt Date: 20110302
  Transmission Date: 20111010
  Serious: Yes (Life-Threatening, Hospitalization)
  Sender: FDA-Public Use
  Company Number: BR-000273

PATIENT
  Sex: Male
  Weight: 22.8 kg

DRUGS (1)
  1. NAGLAZYME [Suspect]
     Indication: MUCOPOLYSACCHARIDOSIS VI
     Dosage: 20 MG 1X/WEEK, INTRAVENOUS DRIP
     Route: 041
     Dates: start: 20040709, end: 20091201

REACTIONS (2)
  - SPINAL CORD COMPRESSION [None]
  - MECHANICAL VENTILATION COMPLICATION [None]
